FAERS Safety Report 8813041 (Version 1)
Quarter: 2012Q4

REPORT INFORMATION
  Report Type: 
  Country: US (occurrence: US)
  Receive Date: 20120927
  Receipt Date: 20120927
  Transmission Date: 20130627
  Serious: Yes (Death)
  Sender: FDA-Public Use
  Company Number: US-ROCHE-1129714

PATIENT
  Sex: Male

DRUGS (4)
  1. HERCEPTIN [Suspect]
     Indication: OESOPHAGEAL CARCINOMA
     Route: 065
  2. HERCEPTIN [Suspect]
     Indication: OESOPHAGEAL CARCINOMA
  3. HERCEPTIN [Suspect]
     Indication: EMBOLISM VENOUS
  4. HERCEPTIN [Suspect]
     Indication: DEHYDRATION

REACTIONS (1)
  - Death [Fatal]
